FAERS Safety Report 21173027 (Version 2)
Quarter: 2022Q3

REPORT INFORMATION
  Report Type: Report from Study
  Country: US (occurrence: US)
  Receive Date: 20220804
  Receipt Date: 20220830
  Transmission Date: 20221027
  Serious: Yes (Death, Hospitalization, Other)
  Sender: FDA-Public Use
  Company Number: US-TAKEDA-2022TUS026929

PATIENT
  Sex: Male

DRUGS (12)
  1. TEDUGLUTIDE [Suspect]
     Active Substance: TEDUGLUTIDE
     Indication: Short-bowel syndrome
     Dosage: 0.44 MILLILITER, QD
     Route: 058
     Dates: start: 201604
  2. TEDUGLUTIDE [Suspect]
     Active Substance: TEDUGLUTIDE
     Indication: Short-bowel syndrome
     Dosage: 0.44 MILLILITER, QD
     Route: 058
     Dates: start: 201604
  3. TEDUGLUTIDE [Suspect]
     Active Substance: TEDUGLUTIDE
     Indication: Short-bowel syndrome
     Dosage: 0.44 MILLILITER, QD
     Route: 058
     Dates: start: 201604
  4. TEDUGLUTIDE [Suspect]
     Active Substance: TEDUGLUTIDE
     Indication: Short-bowel syndrome
     Dosage: 0.44 MILLILITER, QD
     Route: 058
     Dates: start: 201604
  5. TEDUGLUTIDE [Suspect]
     Active Substance: TEDUGLUTIDE
     Indication: Osteoporosis
     Dosage: 0.44 MILLILITER, QD
     Route: 058
     Dates: start: 20160421
  6. TEDUGLUTIDE [Suspect]
     Active Substance: TEDUGLUTIDE
     Indication: Osteoporosis
     Dosage: 0.44 MILLILITER, QD
     Route: 058
     Dates: start: 20160421
  7. TEDUGLUTIDE [Suspect]
     Active Substance: TEDUGLUTIDE
     Indication: Osteoporosis
     Dosage: 0.44 MILLILITER, QD
     Route: 058
     Dates: start: 20160421
  8. TEDUGLUTIDE [Suspect]
     Active Substance: TEDUGLUTIDE
     Indication: Osteoporosis
     Dosage: 0.44 MILLILITER, QD
     Route: 058
     Dates: start: 20160421
  9. TEDUGLUTIDE [Suspect]
     Active Substance: TEDUGLUTIDE
     Dosage: 0.44 MILLILITER, QD
     Route: 058
     Dates: start: 20160426
  10. TEDUGLUTIDE [Suspect]
     Active Substance: TEDUGLUTIDE
     Dosage: 0.44 MILLILITER, QD
     Route: 058
     Dates: start: 20160426
  11. TEDUGLUTIDE [Suspect]
     Active Substance: TEDUGLUTIDE
     Dosage: 0.44 MILLILITER, QD
     Route: 058
     Dates: start: 20160426
  12. TEDUGLUTIDE [Suspect]
     Active Substance: TEDUGLUTIDE
     Dosage: 0.44 MILLILITER, QD
     Route: 058
     Dates: start: 20160426

REACTIONS (4)
  - Death [Fatal]
  - Hospitalisation [Unknown]
  - Peripheral swelling [Unknown]
  - Joint swelling [Unknown]
